FAERS Safety Report 8165401-7 (Version None)
Quarter: 2012Q1

REPORT INFORMATION
  Report Type: 
  Country: None (occurrence: None)
  Receive Date: 20120223
  Receipt Date: 20120223
  Transmission Date: 20120608
  Serious: Yes (Death)
  Sender: FDA-Public Use
  Company Number: None

PATIENT
  Sex: Male

DRUGS (2)
  1. PEGASYS [Suspect]
     Indication: HEPATITIS C
     Dosage: 180MCG 1 X WEEKLY SUBCUTANEOUSLY
     Route: 058
     Dates: start: 20111230, end: 20120101
  2. RIBAVIRIN [Suspect]
     Indication: HEPATITIS C
     Dosage: 200MG 3TABS AM 3TABS PM ORAL
     Route: 048
     Dates: start: 20111230, end: 20120101

REACTIONS (1)
  - MYOCARDIAL INFARCTION [None]
